FAERS Safety Report 10864572 (Version 1)
Quarter: 2015Q1

REPORT INFORMATION
  Report Type: Report from Study
  Country: CA (occurrence: CA)
  Receive Date: 20150224
  Receipt Date: 20150224
  Transmission Date: 20150721
  Serious: Yes (Hospitalization)
  Sender: FDA-Public Use
  Company Number: CA-ABBVIE-13P-028-1083865-00

PATIENT
  Age: 53 Year
  Sex: Female

DRUGS (7)
  1. PREDNISONE. [Concomitant]
     Active Substance: PREDNISONE
     Indication: SMALL INTESTINAL OBSTRUCTION
     Dates: start: 20091007, end: 20091013
  2. PREDNISONE. [Concomitant]
     Active Substance: PREDNISONE
     Indication: ILEAL STENOSIS
  3. PREDNISONE. [Concomitant]
     Active Substance: PREDNISONE
     Indication: CROHN^S DISEASE
     Dates: start: 20091014
  4. TEMOVATE [Concomitant]
     Active Substance: CLOBETASOL PROPIONATE
     Indication: LICHEN PLANUS
     Route: 061
     Dates: start: 20090509, end: 20110602
  5. HUMIRA [Suspect]
     Active Substance: ADALIMUMAB
     Indication: CROHN^S DISEASE
     Route: 058
     Dates: start: 20090115, end: 20090826
  6. PREDNISONE. [Concomitant]
     Active Substance: PREDNISONE
     Indication: SMALL INTESTINAL STENOSIS
  7. SALOFALK [Concomitant]
     Active Substance: MESALAMINE
     Indication: CROHN^S DISEASE
     Dates: start: 20071106

REACTIONS (1)
  - Intestinal stenosis [Unknown]

NARRATIVE: CASE EVENT DATE: 20100120
